FAERS Safety Report 11168715 (Version 1)
Quarter: 2015Q2

REPORT INFORMATION
  Report Type: Spontaneous
  Country: DE (occurrence: DE)
  Receive Date: 20150605
  Receipt Date: 20150605
  Transmission Date: 20150821
  Serious: Yes (Other)
  Sender: FDA-Public Use
  Company Number: DE-WATSON-2015-11210

PATIENT
  Sex: Male

DRUGS (1)
  1. VALSARTAN-ACTAVIS COMP [Suspect]
     Active Substance: VALSARTAN
     Indication: BLOOD PRESSURE INCREASED
     Dosage: UNK UNK, UNKNOWN
     Route: 065
     Dates: start: 20150213

REACTIONS (4)
  - Vision blurred [Not Recovered/Not Resolved]
  - Erectile dysfunction [Unknown]
  - Arthralgia [Not Recovered/Not Resolved]
  - Rash pruritic [Not Recovered/Not Resolved]

NARRATIVE: CASE EVENT DATE: 201502
